FAERS Safety Report 19507078 (Version 2)
Quarter: 2022Q1

REPORT INFORMATION
  Report Type: Spontaneous
  Country: DE (occurrence: DE)
  Receive Date: 20210708
  Receipt Date: 20220218
  Transmission Date: 20220424
  Serious: Yes (Other)
  Sender: FDA-Public Use
  Company Number: DE-MYLANLABS-2021M1039397

PATIENT
  Sex: Male
  Weight: 80 kg

DRUGS (9)
  1. VALSARTAN [Suspect]
     Active Substance: VALSARTAN
     Indication: Hypertension
     Dosage: 320 MILLIGRAM, QD (MORNING)
     Dates: start: 20160419
  2. VALSARTAN [Suspect]
     Active Substance: VALSARTAN
     Dosage: 320 MILLIGRAM, QD (MORNING)
     Dates: start: 20160716
  3. VALSARTAN [Suspect]
     Active Substance: VALSARTAN
     Dosage: 320 MILLIGRAM, QD (MORNING)
     Dates: start: 20161103
  4. VALSARTAN [Suspect]
     Active Substance: VALSARTAN
     Dosage: 320 MILLIGRAM, QD (MORNING)
     Dates: start: 20170303
  5. VALSARTAN [Suspect]
     Active Substance: VALSARTAN
     Dosage: 320 MILLIGRAM, QD (MORNING)
     Dates: start: 20170303
  6. VALSARTAN [Suspect]
     Active Substance: VALSARTAN
     Dosage: 320 MILLIGRAM, QD (MORNING)
     Dates: start: 20170614
  7. VALSARTAN [Suspect]
     Active Substance: VALSARTAN
     Dosage: 320 MILLIGRAM, QD (MORNING)
     Dates: start: 20170914
  8. VALSARTAN [Suspect]
     Active Substance: VALSARTAN
     Dosage: 320 MILLIGRAM, QD (MORNING)
     Dates: start: 20171103
  9. VALSARTAN [Suspect]
     Active Substance: VALSARTAN
     Indication: Hypertension
     Dosage: 320 MILLIGRAM
     Route: 048

REACTIONS (11)
  - Mental impairment [Unknown]
  - Anxiety disorder [Unknown]
  - Impaired quality of life [Unknown]
  - Sleep disorder [Unknown]
  - Nightmare [Unknown]
  - Nervousness [Unknown]
  - Hyperhidrosis [Unknown]
  - Dyspnoea [Unknown]
  - Fear of disease [Unknown]
  - Fatigue [Unknown]
  - Restlessness [Unknown]
